FAERS Safety Report 15868451 (Version 1)
Quarter: 2019Q1

REPORT INFORMATION
  Report Type: Spontaneous
  Country: US (occurrence: US)
  Receive Date: 20190125
  Receipt Date: 20190125
  Transmission Date: 20190417
  Serious: Yes (Hospitalization)
  Sender: FDA-Public Use
  Company Number: US-FRESENIUS KABI-FK201900756

PATIENT
  Age: 32 Year
  Sex: Female
  Weight: 56.75 kg

DRUGS (2)
  1. INTRALIPID [Suspect]
     Active Substance: EGG PHOSPHOLIPIDS\GLYCERIN\SOYBEAN OIL
     Indication: INFERTILITY FEMALE
     Dosage: 4ML
     Route: 042
     Dates: start: 20190105, end: 20190105
  2. SODIUM CHLORIDE. [Suspect]
     Active Substance: SODIUM CHLORIDE
     Indication: INFERTILITY FEMALE
     Dosage: 250ML
     Route: 042
     Dates: start: 20190105, end: 20190105

REACTIONS (5)
  - Off label use [Recovered/Resolved]
  - Vomiting [Recovered/Resolved]
  - Dehydration [Recovered/Resolved]
  - Maternal exposure during pregnancy [Unknown]
  - Pyrexia [Recovered/Resolved]

NARRATIVE: CASE EVENT DATE: 20190105
